FAERS Safety Report 8326067-6 (Version None)
Quarter: 2012Q2

REPORT INFORMATION
  Report Type: 
  Country: None (occurrence: None)
  Receive Date: 20120501
  Receipt Date: 20120424
  Transmission Date: 20120825
  Serious: Yes (Life-Threatening)
  Sender: FDA-Public Use
  Company Number: JP-GLAXOSMITHKLINE-B0691261A

PATIENT
  Sex: Female
  Weight: 56 kg

DRUGS (9)
  1. URSO 250 [Concomitant]
     Indication: HEPATIC FUNCTION ABNORMAL
     Route: 048
     Dates: start: 20100331
  2. XELODA [Concomitant]
     Indication: BREAST CANCER
     Dosage: 2400MG PER DAY
     Route: 048
     Dates: start: 20101221, end: 20101223
  3. GLYCYRON [Concomitant]
     Indication: HEPATIC FUNCTION ABNORMAL
     Route: 048
     Dates: start: 20100331
  4. LOXONIN [Concomitant]
     Indication: PAIN
     Route: 048
     Dates: start: 20100621
  5. GEMZAR [Concomitant]
     Route: 042
     Dates: start: 20110106
  6. TYKERB [Suspect]
     Indication: BREAST CANCER
     Dosage: 1250MG PER DAY
     Route: 048
     Dates: start: 20101221, end: 20101223
  7. MUCOSTA [Concomitant]
     Indication: PROPHYLAXIS
     Route: 048
     Dates: start: 20100621
  8. HERCEPTIN [Concomitant]
     Route: 042
     Dates: start: 20110106
  9. ALLOID G [Concomitant]
     Indication: HEPATIC FUNCTION ABNORMAL
     Route: 048
     Dates: start: 20101117

REACTIONS (1)
  - INTERSTITIAL LUNG DISEASE [None]
